FAERS Safety Report 10386573 (Version 1)
Quarter: 2014Q1

REPORT INFORMATION
  Report Type: Spontaneous
  Country: US (occurrence: None)
  Receive Date: 20140306
  Receipt Date: 20140306
  Transmission Date: 20141002
  Serious: Yes (Other)
  Sender: FDA-Public Use
  Company Number: 163-21880-13121402

PATIENT
  Age: 71 Year
  Sex: Female

DRUGS (5)
  1. REVLIMID (LENALIDOMIDE) (25 MILLIGRAM, CAPSULES) [Suspect]
     Indication: PLASMA CELL MYELOMA
     Route: 048
     Dates: start: 201108
  2. VELCADE (BORTEZOMIB) [Concomitant]
  3. NEURONTIN (GABAPENTIN) [Concomitant]
  4. BIAXIN (CLARITHROMYCIN) [Concomitant]
  5. DEXAMETHASONE (DEXAMETHASONE) [Concomitant]

REACTIONS (4)
  - Rectal haemorrhage [None]
  - Diarrhoea [None]
  - Neuropathy peripheral [None]
  - Plasma cell myeloma [None]
